FAERS Safety Report 6294768-X (Version None)
Quarter: 2009Q3

REPORT INFORMATION
  Report Type: 
  Country: None (occurrence: None)
  Receive Date: 20090803
  Receipt Date: 20090724
  Transmission Date: 20100115
  Serious: Yes (Other)
  Sender: FDA-Public Use
  Company Number: JP-PFIZER INC-2009222637

PATIENT
  Age: 75 Year

DRUGS (1)
  1. CELECOX [Suspect]
     Dosage: 200 MG, UNKNOWN/D
     Route: 048
     Dates: start: 20090425

REACTIONS (2)
  - ANGER [None]
  - DELUSION [None]
